FAERS Safety Report 19362000 (Version 2)
Quarter: 2021Q3

REPORT INFORMATION
  Report Type: Spontaneous
  Country: JP (occurrence: JP)
  Receive Date: 20210603
  Receipt Date: 20210815
  Transmission Date: 20211014
  Serious: Yes (Other)
  Sender: FDA-Public Use
  Company Number: JP-AMGEN-JPNSP2021084356

PATIENT
  Age: 63 Year
  Sex: Male
  Weight: 84.9 kg

DRUGS (4)
  1. ROCALTROL [Concomitant]
     Active Substance: CALCITRIOL
     Dosage: 1.5 MICROGRAM, 2 TIMES/WK
     Route: 065
     Dates: start: 20190809
  2. KIKLIN [Concomitant]
     Active Substance: BIXALOMER
     Dosage: 750 MG, EVERYDAY
     Route: 048
  3. PARSABIV [Suspect]
     Active Substance: ETELCALCETIDE HYDROCHLORIDE
     Indication: HYPERPARATHYROIDISM SECONDARY
     Dosage: 5 MILLIGRAM, 3 TIMES/WK
     Route: 010
     Dates: start: 20191125
  4. ROCALTROL [Concomitant]
     Active Substance: CALCITRIOL
     Dosage: 1 MICROGRAM, 2 TIMES/WK
     Route: 065
     Dates: start: 20190723, end: 20190805

REACTIONS (1)
  - Shunt occlusion [Recovered/Resolved]

NARRATIVE: CASE EVENT DATE: 20200930
